FAERS Safety Report 5391043-2 (Version None)
Quarter: 2007Q3

REPORT INFORMATION
  Report Type: 
  Country: None (occurrence: None)
  Receive Date: 20070717
  Receipt Date: 20070710
  Transmission Date: 20080115
  Serious: Yes (Other)
  Sender: FDA-Public Use
  Company Number: S07-USA-01528-03

PATIENT
  Age: 66 Year
  Sex: Male

DRUGS (14)
  1. NAMENDA [Suspect]
     Indication: MEMORY IMPAIRMENT
     Dates: start: 20070401
  2. COUMADIN [Suspect]
     Indication: HEART VALVE REPLACEMENT
     Dosage: 7.5 MG QD PO
     Route: 048
     Dates: end: 20070405
  3. COUMADIN [Suspect]
     Indication: POSTOPERATIVE CARE
     Dosage: 7.5 MG QD PO
     Route: 048
     Dates: end: 20070405
  4. COUMADIN [Suspect]
     Indication: HEART VALVE REPLACEMENT
     Dosage: 75. MG QD PO
     Route: 048
     Dates: start: 20070408
  5. COUMADIN [Suspect]
     Indication: POSTOPERATIVE CARE
     Dosage: 75. MG QD PO
     Route: 048
     Dates: start: 20070408
  6. XALATAN [Concomitant]
  7. COMBIVERT (ALBUTEROL/IPRATROPIUM) [Concomitant]
  8. NITROQUICK (GLYCERYL TRINITRATE) [Concomitant]
  9. TRILEPTAL [Concomitant]
  10. FLOMAX [Concomitant]
  11. METOPROLOL SUCCINATE [Concomitant]
  12. AVODART [Concomitant]
  13. FOLIC ACID [Concomitant]
  14. ALTACE [Concomitant]

REACTIONS (2)
  - DRUG INTERACTION [None]
  - INTERNATIONAL NORMALISED RATIO [None]
